FAERS Safety Report 8012693-0 (Version None)
Quarter: 2011Q4

REPORT INFORMATION
  Report Type: 
  Country: None (occurrence: None)
  Receive Date: 20111223
  Receipt Date: 20111223
  Transmission Date: 20120403
  Serious: No
  Sender: FDA-Public Use
  Company Number: None

PATIENT
  Sex: Female

DRUGS (2)
  1. RIBASPHERE [Suspect]
     Dosage: 1000 MCG DAILY PO
     Route: 048
     Dates: start: 20111027
  2. PEG-INTRON [Suspect]
     Indication: HEPATITIS C
     Dosage: 95 MCG QW SQ
     Route: 058
     Dates: start: 20111027

REACTIONS (6)
  - WHITE BLOOD CELL COUNT DECREASED [None]
  - ASTHENIA [None]
  - DECREASED APPETITE [None]
  - GAIT DISTURBANCE [None]
  - TREMOR [None]
  - COORDINATION ABNORMAL [None]
